FAERS Safety Report 18042645 (Version 2)
Quarter: 2020Q3

REPORT INFORMATION
  Report Type: Other
  Country: GB (occurrence: GB)
  Receive Date: 20200720
  Receipt Date: 20200831
  Transmission Date: 20201103
  Serious: Yes (Other)
  Sender: FDA-Public Use
  Company Number: GB-STRIDES ARCOLAB LIMITED-2020SP008300

PATIENT
  Age: 58 Year
  Sex: Female
  Weight: 81.64 kg

DRUGS (4)
  1. GABAPENTIN. [Suspect]
     Active Substance: GABAPENTIN
     Indication: MULTIPLE SCLEROSIS
     Dosage: 600 MILLIGRAM, IN A DAY
     Route: 048
     Dates: start: 2010, end: 202006
  2. HYOSCINE BUTYLBROMIDE [Concomitant]
     Active Substance: BUTYLSCOPOLAMINE BROMIDE
     Indication: GASTROINTESTINAL DISORDER
     Dosage: 20 MILLIGRAM, IN A DAY
     Route: 065
  3. HOMOTAURINE [Concomitant]
     Indication: MULTIPLE SCLEROSIS
     Dosage: 100 MILLIGRAM, IN A DAY (BOUGHT BY MYSELF)
     Route: 065
  4. CETIRIZINE DIHYDROCHLORIDE [Concomitant]
     Active Substance: CETIRIZINE HYDROCHLORIDE
     Indication: RHINITIS PERENNIAL
     Dosage: 10 MILLIGRAM, IN A DAY
     Route: 065

REACTIONS (2)
  - Tooth loss [Not Recovered/Not Resolved]
  - Gingival disorder [Not Recovered/Not Resolved]

NARRATIVE: CASE EVENT DATE: 2010
